FAERS Safety Report 9302976 (Version 1)
Quarter: 2013Q2

REPORT INFORMATION
  Report Type: Spontaneous
  Country: BR (occurrence: BR)
  Receive Date: 20130522
  Receipt Date: 20130522
  Transmission Date: 20140414
  Serious: Yes (Other)
  Sender: FDA-Public Use
  Company Number: BR-PFIZER INC-2013149558

PATIENT
  Age: 75 Year
  Sex: Male
  Weight: 90 kg

DRUGS (2)
  1. XALATAN [Suspect]
     Dosage: 3 UG (1 DROP IN EACH EYE), 2X/DAY
     Dates: start: 1998
  2. COMBIGAN [Concomitant]
     Dosage: UNK
     Dates: start: 1998

REACTIONS (2)
  - Eye disorder [Unknown]
  - Off label use [Unknown]
